FAERS Safety Report 8979665 (Version 3)
Quarter: 2013Q2

REPORT INFORMATION
  Report Type: Report from Study
  Country: DK (occurrence: DK)
  Receive Date: 20121221
  Receipt Date: 20130410
  Transmission Date: 20140414
  Serious: Yes (Death, Other)
  Sender: FDA-Public Use
  Company Number: DK-CELGENEUS-044-C5013-12121171

PATIENT
  Age: 70 Year
  Sex: Male
  Weight: 98 kg

DRUGS (12)
  1. CC-5013 [Suspect]
     Indication: PROSTATE CANCER
     Dosage: 25 MILLIGRAM
     Route: 048
     Dates: start: 20110224, end: 20111129
  2. DOCETAXEL [Suspect]
     Indication: PROSTATE CANCER
     Dosage: 75 MILLIGRAM/SQ. METER
     Route: 041
     Dates: start: 20110228, end: 20111013
  3. DOCETAXEL [Suspect]
     Dosage: 75 MILLIGRAM/SQ. METER
     Route: 041
     Dates: start: 20111013, end: 20111031
  4. PREDNISONE [Suspect]
     Indication: PROSTATE CANCER
     Dosage: 10 MILLIGRAM
     Route: 048
     Dates: start: 20110224
  5. PREDNISONE [Suspect]
     Dosage: 10 MILLIGRAM
     Route: 048
     Dates: start: 20111122, end: 20111129
  6. MALFIN [Concomitant]
     Indication: PAIN
     Dosage: 40 MILLIGRAM
     Route: 048
  7. PANODIL [Concomitant]
     Indication: PAIN
     Dosage: 1995 MILLIGRAM
     Route: 048
  8. EMPERAL [Concomitant]
     Indication: NAUSEA
     Dosage: 10 MILLIGRAM
     Route: 048
  9. LANSOPRAZOL [Concomitant]
     Indication: PROPHYLAXIS AGAINST GASTROINTESTINAL ULCER
     Dosage: 30 MILLIGRAM
     Route: 048
  10. PREDNISOLON [Concomitant]
     Indication: NAUSEA
     Dosage: 10 MILLIGRAM
     Route: 048
  11. UNIKARLK SILVER [Concomitant]
     Indication: MINERAL SUPPLEMENTATION
     Dosage: 1X
     Route: 048
  12. ZOLADEX [Concomitant]
     Indication: PROSTATE CANCER
     Route: 048

REACTIONS (1)
  - Non-small cell lung cancer stage IIIB [Fatal]
